FAERS Safety Report 10290749 (Version 2)
Quarter: 2014Q3

REPORT INFORMATION
  Report Type: Spontaneous
  Country: US (occurrence: US)
  Receive Date: 20140710
  Receipt Date: 20140811
  Transmission Date: 20150326
  Serious: Yes (Death)
  Sender: FDA-Public Use
  Company Number: US-ACTELION-A-US2014-101423

PATIENT
  Age: 42 Year
  Sex: Female

DRUGS (2)
  1. SILDENAFIL [Concomitant]
     Active Substance: SILDENAFIL
  2. TRACLEER [Suspect]
     Active Substance: BOSENTAN\BOSENTAN MONOHYDRATE
     Indication: PULMONARY ARTERIAL HYPERTENSION
     Dosage: UNK
     Route: 048
     Dates: end: 20140627

REACTIONS (2)
  - Scleroderma [Fatal]
  - Overlap syndrome [Fatal]

NARRATIVE: CASE EVENT DATE: 20140627
